FAERS Safety Report 19698312 (Version 2)
Quarter: 2021Q4

REPORT INFORMATION
  Report Type: Spontaneous
  Country: US (occurrence: US)
  Receive Date: 20210813
  Receipt Date: 20211012
  Transmission Date: 20220303
  Serious: No
  Sender: FDA-Public Use
  Company Number: US-BIOGEN-2021BI01035602

PATIENT
  Sex: Female

DRUGS (1)
  1. TYSABRI [Suspect]
     Active Substance: NATALIZUMAB
     Indication: Multiple sclerosis
     Route: 065
     Dates: start: 20200805

REACTIONS (5)
  - Radiculopathy [Unknown]
  - Paraesthesia [Unknown]
  - Memory impairment [Unknown]
  - Hypoaesthesia [Recovered/Resolved with Sequelae]
  - Fatigue [Unknown]

NARRATIVE: CASE EVENT DATE: 20190101
